FAERS Safety Report 5361140-6 (Version None)
Quarter: 2007Q2

REPORT INFORMATION
  Report Type: 
  Country: None (occurrence: None)
  Receive Date: 20070614
  Receipt Date: 20070529
  Transmission Date: 20071010
  Serious: Yes (Life-Threatening, Hospitalization)
  Sender: FDA-Public Use
  Company Number: DSA_29446_2007

PATIENT
  Sex: Female
  Weight: 46.1 kg

DRUGS (3)
  1. TEMESTA (TEMESTA) [Suspect]
     Dosage: 2.5 MG QD ORAL
     Route: 048
     Dates: start: 20060322, end: 20060322
  2. ZYPREXA (ZYPREXA) [Suspect]
     Dosage: 15 MG BID ORAL
     Route: 048
     Dates: start: 20060322, end: 20060322
  3. ASPIRIN [Concomitant]

REACTIONS (12)
  - ABNORMAL BEHAVIOUR [None]
  - AGITATION [None]
  - ALTERED STATE OF CONSCIOUSNESS [None]
  - BLOOD GLUCOSE DECREASED [None]
  - DEHYDRATION [None]
  - DELIRIUM [None]
  - FLUID INTAKE REDUCED [None]
  - HALLUCINATION, VISUAL [None]
  - RENAL FAILURE [None]
  - RESTLESSNESS [None]
  - UNRESPONSIVE TO STIMULI [None]
  - VASCULAR ENCEPHALOPATHY [None]
